FAERS Safety Report 20962214 (Version 1)
Quarter: 2022Q2

REPORT INFORMATION
  Report Type: Spontaneous
  Country: US (occurrence: None)
  Receive Date: 20220614
  Receipt Date: 20220614
  Transmission Date: 20220721
  Serious: Yes (Death)
  Sender: FDA-Public Use
  Company Number: None

PATIENT
  Age: 84 Year
  Sex: Male

DRUGS (2)
  1. NUPLAZID [Suspect]
     Active Substance: PIMAVANSERIN TARTRATE
  2. NUPLAZID [Concomitant]
     Active Substance: PIMAVANSERIN TARTRATE

REACTIONS (1)
  - Death [None]

NARRATIVE: CASE EVENT DATE: 20220614
